FAERS Safety Report 9259019 (Version 1)
Quarter: 2013Q2

REPORT INFORMATION
  Report Type: Spontaneous
  Country: US (occurrence: US)
  Receive Date: 20130426
  Receipt Date: 20130426
  Transmission Date: 20140414
  Serious: Yes (Other)
  Sender: FDA-Public Use
  Company Number: US-ASTRAZENECA-2013SE26831

PATIENT
  Age: 63 Year
  Sex: Male
  Weight: 62.1 kg

DRUGS (6)
  1. NEXIUM [Suspect]
     Indication: GASTROOESOPHAGEAL REFLUX DISEASE
     Route: 048
     Dates: start: 2003
  2. METROPROLOL [Suspect]
     Indication: MYOCARDIAL INFARCTION
     Route: 048
     Dates: start: 20121024
  3. CLOPIDOGREL [Concomitant]
     Indication: MYOCARDIAL INFARCTION
     Dates: start: 20121024
  4. ASPIRIN [Concomitant]
  5. RILUTEK [Concomitant]
     Indication: AMYOTROPHIC LATERAL SCLEROSIS
     Dates: start: 20130416
  6. SUPPLEMENTS [Concomitant]

REACTIONS (2)
  - Amyotrophic lateral sclerosis [Unknown]
  - Myocardial infarction [Unknown]
